FAERS Safety Report 8033278-6 (Version None)
Quarter: 2012Q1

REPORT INFORMATION
  Report Type: 
  Country: None (occurrence: None)
  Receive Date: 20120110
  Receipt Date: 20120106
  Transmission Date: 20120608
  Serious: Yes (Death, Hospitalization, Other)
  Sender: FDA-Public Use
  Company Number: US-B.I. PHARMACEUTICALS,INC./RIDGEFIELD-2011-BP-27691BP

PATIENT
  Sex: Female

DRUGS (5)
  1. BENICAR [Concomitant]
     Indication: HYPERTENSION
     Dosage: 40 MG
  2. TOPROL-XL [Concomitant]
     Indication: HYPERTENSION
     Dosage: 100 MG
  3. CLONIDINE [Concomitant]
     Indication: HYPERTENSION
     Dosage: 0.4 MG
  4. PRADAXA [Suspect]
     Indication: ATRIAL FIBRILLATION
     Dosage: 300 MG
     Route: 048
     Dates: start: 20110801
  5. NIFEDIPINE [Concomitant]
     Indication: HYPERTENSION
     Dosage: 60 MG

REACTIONS (1)
  - CEREBRAL HAEMORRHAGE [None]
